FAERS Safety Report 15752372 (Version 7)
Quarter: 2020Q4

REPORT INFORMATION
  Report Type: Report from Study
  Country: NL (occurrence: NL)
  Receive Date: 20181221
  Receipt Date: 20201228
  Transmission Date: 20210113
  Serious: Yes (Other)
  Sender: FDA-Public Use
  Company Number: PHHY2018NL188594

PATIENT
  Age: 30 Year
  Sex: Female
  Weight: 77 kg

DRUGS (6)
  1. OMNITROPE [Suspect]
     Active Substance: SOMATROPIN
     Indication: CRANIOPHARYNGIOMA
     Dosage: 0.4 MG, QD  (5MG/1.5ML)
     Route: 058
     Dates: start: 20171218
  2. HYDROCORTISONE. [Concomitant]
     Active Substance: HYDROCORTISONE
     Indication: ADRENOCORTICOTROPIC HORMONE DEFICIENCY
     Dosage: 20 MG, UNKNOWN
     Route: 065
     Dates: start: 201312
  3. OMNITROPE [Suspect]
     Active Substance: SOMATROPIN
     Indication: GROWTH HORMONE DEFICIENCY
     Dosage: 0.4 MG, QD  (5MG/1.5ML)
     Route: 058
     Dates: start: 20140901
  4. DESMOPRESSIN [Concomitant]
     Active Substance: DESMOPRESSIN
     Indication: BLOOD ANTIDIURETIC HORMONE DECREASED
     Dosage: 0.1 MG, UNKNOWN
     Route: 065
     Dates: start: 20140217
  5. LEVOTHYROXIN [Concomitant]
     Active Substance: LEVOTHYROXINE
     Indication: BLOOD THYROID STIMULATING HORMONE DECREASED
     Dosage: 112 UG, UNKNOWN
     Route: 065
     Dates: start: 20140403
  6. DEHYDROEPIANDROSTERONE [Concomitant]
     Active Substance: PRASTERONE
     Indication: ADRENOCORTICOTROPIC HORMONE DEFICIENCY
     Dosage: 50 MG, UNKNOWN
     Route: 065
     Dates: start: 2017

REACTIONS (4)
  - Adrenocortical insufficiency acute [Recovered/Resolved]
  - Neoplasm progression [Recovering/Resolving]
  - Craniopharyngioma [Recovering/Resolving]
  - Adrenocortical insufficiency acute [Recovered/Resolved]

NARRATIVE: CASE EVENT DATE: 20180516
